FAERS Safety Report 24122519 (Version 1)
Quarter: 2024Q3

REPORT INFORMATION
  Report Type: Spontaneous
  Country: JP (occurrence: JP)
  Receive Date: 20240723
  Receipt Date: 20240723
  Transmission Date: 20241017
  Serious: Yes (Hospitalization)
  Sender: STRIDES
  Company Number: JP-STRIDES ARCOLAB LIMITED-2024SP008918

PATIENT
  Age: 74 Year
  Sex: Male

DRUGS (6)
  1. PREDNISOLONE [Suspect]
     Active Substance: PREDNISOLONE
     Indication: Pemphigus
     Dosage: 14 MILLIGRAM, QD
     Route: 048
  2. PREDNISOLONE [Suspect]
     Active Substance: PREDNISOLONE
     Dosage: 5 MILLIGRAM, QD (DOSE DECREASED)
     Route: 048
  3. PREDNISOLONE [Suspect]
     Active Substance: PREDNISOLONE
     Dosage: 14 MILLIGRAM (INCREASED AGAIN)
     Route: 048
  4. AZATHIOPRINE [Suspect]
     Active Substance: AZATHIOPRINE
     Indication: Pemphigus
     Dosage: UNK, QD
     Route: 048
  5. AZATHIOPRINE [Suspect]
     Active Substance: AZATHIOPRINE
     Dosage: UNK (DISCONTINUED VIA DOSE REDUCTIONS EVERY THREE DAYS)
     Route: 048
  6. AZATHIOPRINE [Suspect]
     Active Substance: AZATHIOPRINE
     Dosage: UNK (RESTARTED)
     Route: 048

REACTIONS (6)
  - Peripheral embolism [Recovered/Resolved]
  - Peripheral ischaemia [Recovered/Resolved]
  - Cardiac arrest [Recovered/Resolved]
  - Endocarditis [Recovered/Resolved]
  - Infective spondylitis [Recovered/Resolved]
  - Staphylococcal infection [Recovered/Resolved]
